FAERS Safety Report 16487882 (Version 2)
Quarter: 2022Q1

REPORT INFORMATION
  Report Type: Report from Study
  Country: US (occurrence: US)
  Receive Date: 20190627
  Receipt Date: 20220106
  Transmission Date: 20220424
  Serious: Yes (Hospitalization, Other)
  Sender: FDA-Public Use
  Company Number: US-SHIRE-US201920369

PATIENT
  Sex: Female

DRUGS (4)
  1. TEDUGLUTIDE [Suspect]
     Active Substance: TEDUGLUTIDE
     Indication: Short-bowel syndrome
     Dosage: 0.320 MILLILITER, QD
     Route: 058
     Dates: start: 20151106
  2. TEDUGLUTIDE [Suspect]
     Active Substance: TEDUGLUTIDE
     Indication: Short-bowel syndrome
     Dosage: 0.320 MILLILITER, QD
     Route: 058
     Dates: start: 20151106
  3. TEDUGLUTIDE [Suspect]
     Active Substance: TEDUGLUTIDE
     Indication: Short-bowel syndrome
     Dosage: 0.320 MILLILITER, QD
     Route: 058
     Dates: start: 20151106
  4. TEDUGLUTIDE [Suspect]
     Active Substance: TEDUGLUTIDE
     Indication: Short-bowel syndrome
     Dosage: 0.320 MILLILITER, QD
     Route: 058
     Dates: start: 20151106

REACTIONS (2)
  - Ammonia increased [Not Recovered/Not Resolved]
  - Carcinoembryonic antigen increased [Not Recovered/Not Resolved]
